FAERS Safety Report 6547191-4 (Version None)
Quarter: 2009Q4

REPORT INFORMATION
  Report Type: 
  Country: None (occurrence: None)
  Receive Date: 20091215
  Receipt Date: 20090814
  Transmission Date: 20100525
  Serious: Yes (Other)
  Sender: FDA-Public Use
  Company Number: FEI2009-1709

PATIENT
  Age: 30 Year
  Sex: Female
  Weight: 49.8957 kg

DRUGS (1)
  1. PARAGARD T 380A [Suspect]
     Indication: CONTRACEPTION
     Dosage: INTRA-UTERINE
     Route: 015
     Dates: start: 20060901

REACTIONS (4)
  - CHOLECYSTECTOMY [None]
  - MEDICAL DEVICE COMPLICATION [None]
  - UNINTENDED PREGNANCY [None]
  - UTERINE PERFORATION [None]
